FAERS Safety Report 10058661 (Version 1)
Quarter: 2014Q2

REPORT INFORMATION
  Report Type: Other
  Country: US (occurrence: US)
  Receive Date: 20140404
  Receipt Date: 20140404
  Transmission Date: 20141212
  Serious: Yes (Death)
  Sender: FDA-Public Use
  Company Number: US-US-EMD SERONO, INC.-7278640

PATIENT
  Age: 62 Year
  Sex: 0

DRUGS (2)
  1. CHORIOGONADOTROPIN ALFA [Suspect]
     Indication: CEREBROVASCULAR ACCIDENT
     Route: 058
  2. EPOETIN ALFA [Suspect]
     Indication: CEREBROVASCULAR ACCIDENT
     Route: 042

REACTIONS (2)
  - Dyspnoea [Fatal]
  - Off label use [Unknown]
